FAERS Safety Report 9385155 (Version 2)
Quarter: 2013Q3

REPORT INFORMATION
  Report Type: Report from Study
  Country: CA (occurrence: CA)
  Receive Date: 20130705
  Receipt Date: 20130812
  Transmission Date: 20140515
  Serious: Yes (Death, Hospitalization)
  Sender: FDA-Public Use
  Company Number: CA-PFIZER INC-2013128633

PATIENT
  Age: 66 Year
  Sex: Male
  Weight: 70 kg

DRUGS (14)
  1. CARBOPLATIN [Suspect]
     Indication: HEAD AND NECK CANCER
     Dosage: AUC 5, CYCLIC, ON DAY ONE
     Route: 042
     Dates: start: 20121030
  2. FLUOROURACIL [Suspect]
     Indication: HEAD AND NECK CANCER
     Dosage: 1000 MG/M2, ON DAYS ONE TO FOUR, CYCLIC
     Route: 042
     Dates: start: 20121030
  3. BLINDED THERAPY [Suspect]
     Indication: HEAD AND NECK CANCER
     Dosage: CYCLIC
     Route: 042
     Dates: start: 20121030, end: 20121030
  4. BLINDED THERAPY [Suspect]
     Dosage: CYCLIC
     Route: 042
     Dates: start: 20121106, end: 20130306
  5. LORAZEPAM [Concomitant]
     Indication: INSOMNIA
     Dosage: UNK
     Dates: start: 20110916
  6. LYRICA [Concomitant]
     Indication: BACK PAIN
     Dosage: UNK
     Dates: start: 201206
  7. HYDROMORPHONE [Concomitant]
     Indication: BACK PAIN
     Dosage: UNK
     Dates: start: 20121017
  8. NAPROSYN [Concomitant]
     Indication: BACK PAIN
     Dosage: UNK
     Dates: start: 20120313
  9. CITALOPRAM [Concomitant]
     Indication: DEPRESSION
     Dosage: UNK
     Dates: start: 201109
  10. COLACE [Concomitant]
     Indication: CONSTIPATION
     Dosage: UNK
     Dates: start: 201206
  11. SENOKOT [Concomitant]
     Indication: CONSTIPATION
     Dosage: UNK
     Dates: start: 201206
  12. TRAZODONE [Concomitant]
     Indication: DEPRESSION
     Dosage: UNK
     Dates: start: 201109
  13. NEXIUM [Concomitant]
     Indication: REFLUX GASTRITIS
     Dosage: UNK
     Dates: start: 2011
  14. HYDROCORTISONE [Concomitant]
     Indication: RASH
     Dosage: UNK
     Dates: start: 20121228

REACTIONS (2)
  - Disease progression [Fatal]
  - Head and neck cancer [Fatal]
